FAERS Safety Report 13039552 (Version 3)
Quarter: 2019Q1

REPORT INFORMATION
  Report Type: Spontaneous
  Country: DE (occurrence: DE)
  Receive Date: 20161219
  Receipt Date: 20190115
  Transmission Date: 20190417
  Serious: Yes (Hospitalization, Other)
  Sender: FDA-Public Use
  Company Number: DE-BAYER-2016-239608

PATIENT
  Age: 54 Year
  Sex: Female
  Weight: 80 kg

DRUGS (9)
  1. ULTRAVIST [Suspect]
     Active Substance: IOPROMIDE
     Indication: UROGRAM
     Dosage: UNK, ONCE
     Route: 042
     Dates: start: 20110531, end: 2011
  2. UNACID [AMPICILLIN SODIUM;SULBACTAM SODIUM] [Concomitant]
     Active Substance: AMPICILLIN SODIUM\SULBACTAM SODIUM
     Dosage: SWITCHED FROM CIPROBAY;
  3. CIPROBAY 250 MG [Suspect]
     Active Substance: CIPROFLOXACIN
     Indication: PYELONEPHRITIS
  4. CIPROBAY 250 MG [Suspect]
     Active Substance: CIPROFLOXACIN
     Indication: PYELONEPHRITIS
     Dosage: 250 MG, BID
     Route: 048
     Dates: start: 20110524, end: 20110526
  5. SULPIRID [Concomitant]
     Active Substance: SULPIRIDE
     Route: 048
  6. SIMVASTATIN. [Concomitant]
     Active Substance: SIMVASTATIN
     Route: 048
  7. ASPIRIN. [Concomitant]
     Active Substance: ASPIRIN
     Route: 048
  8. METOPROLOL. [Concomitant]
     Active Substance: METOPROLOL
     Route: 048
  9. ATACAND [Concomitant]
     Active Substance: CANDESARTAN CILEXETIL
     Route: 048

REACTIONS (9)
  - Metabolic acidosis [Recovering/Resolving]
  - Drug hypersensitivity [Unknown]
  - Rash generalised [Unknown]
  - Pulmonary oedema [Recovering/Resolving]
  - Acute left ventricular failure [Recovering/Resolving]
  - Diarrhoea [Recovered/Resolved]
  - Acute myocardial infarction [Recovering/Resolving]
  - Anaphylactic shock [Recovering/Resolving]
  - Acute respiratory failure [Recovering/Resolving]

NARRATIVE: CASE EVENT DATE: 20110526
